FAERS Safety Report 4937627-4 (Version None)
Quarter: 2006Q1

REPORT INFORMATION
  Report Type: 
  Country: None (occurrence: None)
  Receive Date: 20060308
  Receipt Date: 20060308
  Transmission Date: 20060701
  Serious: No
  Sender: FDA-Public Use
  Company Number: None

PATIENT
  Age: 63 Year
  Sex: Female
  Weight: 74.8435 kg

DRUGS (2)
  1. LASIX [Suspect]
     Indication: FLUID RETENTION
     Dosage: 40 MG 1 DAILY
  2. ADALAT [Suspect]
     Indication: HYPERTENSION
     Dosage: 30 MG 2 DAILY AM,PM

REACTIONS (6)
  - BLOOD PRESSURE INCREASED [None]
  - DRUG INEFFECTIVE [None]
  - MUSCLE SPASMS [None]
  - PAIN IN EXTREMITY [None]
  - POLLAKIURIA [None]
  - REFUSAL OF TREATMENT BY PATIENT [None]
